FAERS Safety Report 6409678-4 (Version None)
Quarter: 2009Q4

REPORT INFORMATION
  Report Type: 
  Country: None (occurrence: None)
  Receive Date: 20091021
  Receipt Date: 20091021
  Transmission Date: 20100525
  Serious: Yes (Other)
  Sender: FDA-Public Use
  Company Number: None

PATIENT
  Age: 66 Year
  Sex: Female

DRUGS (1)
  1. VENLAFAXINE 75MG XR [Suspect]
     Indication: MAJOR DEPRESSION
     Dosage: 75MG Q12H PO
     Route: 048
     Dates: start: 20081021, end: 20081111

REACTIONS (3)
  - COMPLETED SUICIDE [None]
  - DRY MOUTH [None]
  - TREATMENT NONCOMPLIANCE [None]
